FAERS Safety Report 10369740 (Version 1)
Quarter: 2014Q3

REPORT INFORMATION
  Report Type: Spontaneous
  Country: US (occurrence: US)
  Receive Date: 20140807
  Receipt Date: 20140807
  Transmission Date: 20150326
  Serious: Yes (Hospitalization)
  Sender: FDA-Public Use
  Company Number: US-ABBVIE-14P-163-1266937-00

PATIENT
  Age: 45 Year
  Sex: Female
  Weight: 61.74 kg

DRUGS (2)
  1. DEPAKOTE [Concomitant]
     Active Substance: DIVALPROEX SODIUM
     Indication: CONVULSION
  2. HUMIRA [Suspect]
     Active Substance: ADALIMUMAB
     Indication: CROHN^S DISEASE
     Dates: start: 201404

REACTIONS (8)
  - Abdominal pain upper [Recovering/Resolving]
  - Gallbladder disorder [Recovered/Resolved]
  - Pain [Unknown]
  - Nausea [Recovering/Resolving]
  - Pyrexia [Recovered/Resolved]
  - Vomiting [Recovering/Resolving]
  - Tremor [Recovered/Resolved]
  - Blood pressure increased [Recovered/Resolved]

NARRATIVE: CASE EVENT DATE: 20140715
